FAERS Safety Report 10238132 (Version 1)
Quarter: 2014Q2

REPORT INFORMATION
  Report Type: Spontaneous
  Country: US (occurrence: None)
  Receive Date: 20140613
  Receipt Date: 20140613
  Transmission Date: 20141212
  Serious: Yes (Death)
  Sender: FDA-Public Use
  Company Number: None

PATIENT
  Age: 86 Year
  Sex: Male
  Weight: 99 kg

DRUGS (11)
  1. RIVAROXABAN 20MG [Suspect]
     Indication: ATRIAL FIBRILLATION
     Dosage: 1 TABLET
     Route: 048
  2. RIVAROXABAN 20MG [Suspect]
     Indication: TRANSIENT ISCHAEMIC ATTACK
     Dosage: 1 TABLET
     Route: 048
  3. ASPIRIN [Suspect]
     Indication: ATRIAL FIBRILLATION
     Route: 048
  4. ASPIRIN [Suspect]
     Indication: TRANSIENT ISCHAEMIC ATTACK
     Route: 048
  5. ASCORBIC ACID [Concomitant]
  6. CALCIUM/MAG CARBONATE [Concomitant]
  7. VITAMIN D3 [Concomitant]
  8. OMEGA 3 [Concomitant]
  9. DUTASTERIDE [Concomitant]
  10. GLUCOSAMINE/CHONDROINTIN [Concomitant]
  11. SILDENAFIL [Concomitant]

REACTIONS (2)
  - Haemorrhagic stroke [None]
  - Hypertension [None]
